FAERS Safety Report 4855993-5 (Version None)
Quarter: 2005Q4

REPORT INFORMATION
  Report Type: 
  Country: None (occurrence: None)
  Receive Date: 20051214
  Receipt Date: 20051206
  Transmission Date: 20060501
  Serious: Yes (Death, Hospitalization)
  Sender: FDA-Public Use
  Company Number: 2005JP000617

PATIENT
  Age: 34 Year
  Sex: Male
  Weight: 73 kg

DRUGS (3)
  1. PROGRAF [Suspect]
     Indication: LIVER TRANSPLANT
     Dates: start: 20041224, end: 20050321
  2. FLORID-F (MICONAZOLE) INJECTION [Concomitant]
  3. CYCLOSPORINE [Concomitant]

REACTIONS (3)
  - BRAIN ABSCESS [None]
  - PSYCHIATRIC SYMPTOM [None]
  - THERAPY NON-RESPONDER [None]
